FAERS Safety Report 24944137 (Version 1)
Quarter: 2025Q1

REPORT INFORMATION
  Report Type: Spontaneous
  Country: CN (occurrence: CN)
  Receive Date: 20250207
  Receipt Date: 20250207
  Transmission Date: 20250408
  Serious: Yes (Other)
  Sender: ROCHE
  Company Number: CN-ROCHE-10000200969

PATIENT
  Age: 66 Year
  Sex: Female
  Weight: 45 kg

DRUGS (3)
  1. ACTEMRA [Suspect]
     Active Substance: TOCILIZUMAB
     Indication: Rheumatoid arthritis
     Route: 042
     Dates: start: 20250105, end: 20250105
  2. ACTEMRA [Suspect]
     Active Substance: TOCILIZUMAB
     Route: 042
     Dates: start: 20241205
  3. SODIUM CHLORIDE [Concomitant]
     Active Substance: SODIUM CHLORIDE

REACTIONS (4)
  - Hyperpyrexia [Recovered/Resolved]
  - Temperature intolerance [Recovered/Resolved]
  - Chills [Recovered/Resolved]
  - Chest discomfort [Recovered/Resolved]

NARRATIVE: CASE EVENT DATE: 20250105
